FAERS Safety Report 15239079 (Version 3)
Quarter: 2018Q4

REPORT INFORMATION
  Report Type: Spontaneous
  Country: US (occurrence: US)
  Receive Date: 20180803
  Receipt Date: 20181112
  Transmission Date: 20190204
  Serious: Yes (Hospitalization, Other)
  Sender: FDA-Public Use
  Company Number: US-SA-2018SA208296

PATIENT
  Age: 33 Year
  Sex: Female
  Weight: 47.2 kg

DRUGS (17)
  1. NITROFURANTOIN. [Concomitant]
     Active Substance: NITROFURANTOIN
     Dosage: 100 MG, BID
     Route: 048
     Dates: start: 20180627
  2. MULTIVITAMINS [VITAMINS NOS] [Concomitant]
     Active Substance: VITAMINS
     Dosage: 1 UNK, QD
     Route: 048
     Dates: start: 20160428
  3. OXYCODONE [Concomitant]
     Active Substance: OXYCODONE
     Dosage: 1 DF
     Route: 048
     Dates: start: 20171020
  4. OXYBUTYNIN. [Concomitant]
     Active Substance: OXYBUTYNIN CHLORIDE
     Dosage: 1 DF, BID
     Route: 048
     Dates: start: 20170406
  5. BACTRIM DS [Concomitant]
     Active Substance: SULFAMETHOXAZOLE\TRIMETHOPRIM
     Dosage: 1 DF, QD
     Route: 048
     Dates: start: 20180529
  6. CEPHALEXIN [CEFALEXIN] [Concomitant]
     Dosage: 1 DF, BID
     Route: 048
     Dates: start: 20170430
  7. METHADONE [Concomitant]
     Active Substance: METHADONE HYDROCHLORIDE
     Dosage: 1 UNK, BID
     Route: 048
     Dates: start: 20170411
  8. NORMAL SALINE [Concomitant]
     Active Substance: SODIUM CHLORIDE
     Dosage: 0.9 %
     Route: 042
     Dates: start: 20180411
  9. STERILE WATER [Concomitant]
     Active Substance: WATER
     Dosage: 1 UNK
     Route: 042
     Dates: start: 20180411
  10. EPINEPHRINE. [Concomitant]
     Active Substance: EPINEPHRINE
     Indication: ANAPHYLACTIC REACTION
     Dosage: 0.3 MG, UNK
     Route: 030
     Dates: start: 20180411
  11. CEREZYME [Suspect]
     Active Substance: IMIGLUCERASE
     Indication: LIPIDOSIS
  12. AUGMENTIN [AMOXICILLIN;CLAVULANIC ACID] [Concomitant]
     Dosage: 1 DF, UNK
     Route: 048
     Dates: start: 10171020
  13. GABAPENTIN. [Concomitant]
     Active Substance: GABAPENTIN
     Dosage: 1 UNK, BID
     Route: 048
     Dates: start: 20170104
  14. TYLENOL EXTRA STRENGTH [Concomitant]
     Active Substance: ACETAMINOPHEN
     Dosage: 1 DF
     Route: 048
     Dates: start: 20160428
  15. CEREZYME [Suspect]
     Active Substance: IMIGLUCERASE
     Indication: GAUCHER^S DISEASE
     Dosage: DOSE:3600 UN, QOW
     Route: 041
     Dates: start: 19940728
  16. FAMOTIDINE. [Concomitant]
     Active Substance: FAMOTIDINE
     Dosage: 1 UNK, BID
     Route: 048
     Dates: start: 20170101
  17. VITAMIN C [ASCORBIC ACID] [Concomitant]
     Dosage: 1 DF, QD
     Route: 048
     Dates: start: 20160428

REACTIONS (3)
  - Escherichia urinary tract infection [Unknown]
  - Herpes zoster [Unknown]
  - Osteomyelitis [Not Recovered/Not Resolved]

NARRATIVE: CASE EVENT DATE: 20181017
